FAERS Safety Report 11156269 (Version 1)
Quarter: 2015Q2

REPORT INFORMATION
  Report Type: Spontaneous
  Country: FR (occurrence: FR)
  Receive Date: 20150602
  Receipt Date: 20150602
  Transmission Date: 20150821
  Serious: Yes (Other)
  Sender: FDA-Public Use
  Company Number: FR-TEVA-566398ISR

PATIENT
  Sex: Female

DRUGS (8)
  1. DIFFU K [Concomitant]
     Active Substance: POTASSIUM CHLORIDE
     Indication: BRAIN NEOPLASM
     Dosage: 1800 MILLIGRAM DAILY;
  2. PROGLYCEM [Suspect]
     Active Substance: DIAZOXIDE
     Dates: start: 201504
  3. CCNU [Concomitant]
     Active Substance: LOMUSTINE
     Indication: BRAIN NEOPLASM
  4. ZONEGRAN [Concomitant]
     Active Substance: ZONISAMIDE
     Dosage: 200 MILLIGRAM DAILY;
  5. VINCRISTINE [Concomitant]
     Active Substance: VINCRISTINE
     Indication: BRAIN NEOPLASM
  6. KEPPRA [Concomitant]
     Active Substance: LEVETIRACETAM
     Dosage: 3000 MILLIGRAM DAILY;
  7. URBANYL [Concomitant]
     Active Substance: CLOBAZAM
     Dosage: 20 MILLIGRAM DAILY; 5 MG IN THE MORNING AND AT NOON AND 10 MG IN THE EVENING
  8. PROCARBAZIN [Concomitant]
     Indication: BRAIN NEOPLASM

REACTIONS (2)
  - Hypersensitivity [Unknown]
  - Generalised oedema [Unknown]

NARRATIVE: CASE EVENT DATE: 2015
